FAERS Safety Report 11048941 (Version 1)
Quarter: 2015Q2

REPORT INFORMATION
  Report Type: Spontaneous
  Country: US (occurrence: US)
  Receive Date: 20150420
  Receipt Date: 20150420
  Transmission Date: 20150821
  Serious: No
  Sender: FDA-Public Use
  Company Number: US-009507513-1504USA009975

PATIENT
  Sex: Female

DRUGS (1)
  1. BELSOMRA [Suspect]
     Active Substance: SUVOREXANT
     Indication: INSOMNIA
     Dosage: 10 MG, ONE TABLET, QPM,
     Route: 048
     Dates: start: 201503, end: 201503

REACTIONS (2)
  - Anxiety [Unknown]
  - Somnambulism [Unknown]

NARRATIVE: CASE EVENT DATE: 201503
